FAERS Safety Report 25593441 (Version 1)
Quarter: 2025Q3

REPORT INFORMATION
  Report Type: Spontaneous
  Country: US (occurrence: US)
  Receive Date: 20250722
  Receipt Date: 20250722
  Transmission Date: 20251020
  Serious: No
  Sender: ALEXION PHARMACEUTICALS
  Company Number: US-AstraZeneca-CH-00910478A

PATIENT
  Sex: Male

DRUGS (1)
  1. BRILINTA [Suspect]
     Active Substance: TICAGRELOR
     Indication: Stent placement

REACTIONS (5)
  - Chromaturia [Unknown]
  - Vascular access site haemorrhage [Unknown]
  - Haemorrhagic diathesis [Unknown]
  - Skin lesion [Unknown]
  - Post procedural haemorrhage [Unknown]
